FAERS Safety Report 5837066-8 (Version None)
Quarter: 2008Q3

REPORT INFORMATION
  Report Type: 
  Country: None (occurrence: None)
  Receive Date: 20080807
  Receipt Date: 20070712
  Transmission Date: 20090109
  Serious: No
  Sender: FDA-Public Use
  Company Number: A0663275A

PATIENT
  Age: 77 Year
  Sex: Female

DRUGS (3)
  1. TAGAMET HB 200 [Suspect]
     Route: 048
  2. LIBRAX [Concomitant]
  3. PREMARIN [Concomitant]

REACTIONS (2)
  - DRUG INEFFECTIVE [None]
  - THERAPEUTIC RESPONSE UNEXPECTED [None]
